FAERS Safety Report 18023510 (Version 3)
Quarter: 2020Q3

REPORT INFORMATION
  Report Type: Other
  Country: US (occurrence: US)
  Receive Date: 20200715
  Receipt Date: 20200722
  Transmission Date: 20201103
  Serious: Yes (Other)
  Sender: FDA-Public Use
  Company Number: US-ROCHE-2640740

PATIENT
  Age: 53 Year
  Sex: Female
  Weight: 59.02 kg

DRUGS (6)
  1. XANAX [Concomitant]
     Active Substance: ALPRAZOLAM
     Indication: ANXIETY
  2. OXYCODONE [Concomitant]
     Active Substance: OXYCODONE
     Indication: PAIN
  3. OCREVUS [Suspect]
     Active Substance: OCRELIZUMAB
     Indication: PRIMARY PROGRESSIVE MULTIPLE SCLEROSIS
     Route: 065
     Dates: start: 20171222
  4. OCREVUS [Suspect]
     Active Substance: OCRELIZUMAB
     Route: 065
     Dates: start: 20171227, end: 20200710
  5. LAMICTAL [Concomitant]
     Active Substance: LAMOTRIGINE
  6. REGLAN [Concomitant]
     Active Substance: METOCLOPRAMIDE HYDROCHLORIDE

REACTIONS (7)
  - Dysphagia [Unknown]
  - Concussion [Unknown]
  - Multiple sclerosis relapse [Recovered/Resolved]
  - Burning sensation [Recovering/Resolving]
  - Dehydration [Unknown]
  - Throat tightness [Recovering/Resolving]
  - Sensation of foreign body [Unknown]

NARRATIVE: CASE EVENT DATE: 201901
